FAERS Safety Report 4909151-6 (Version None)
Quarter: 2006Q1

REPORT INFORMATION
  Report Type: 
  Country: None (occurrence: None)
  Receive Date: 20060208
  Receipt Date: 20060125
  Transmission Date: 20060701
  Serious: Yes (Other)
  Sender: FDA-Public Use
  Company Number: US-2005-024451

PATIENT
  Age: 49 Year
  Sex: Male
  Weight: 79.3 kg

DRUGS (5)
  1. BETASERON (INTERFERON BETA - 1B) INJECTION, 250UG [Suspect]
     Indication: MULTIPLE SCLEROSIS
     Dosage: 8 MIU, EVERY 2D, SUBCUTANEOUS
     Route: 058
     Dates: start: 20050911, end: 20051125
  2. PREVACID [Concomitant]
  3. PERCOCET [Concomitant]
  4. IMITREX ^CERENEX^ (SUMATRIPTAN SUCCINATE) [Concomitant]
  5. COPAXONE [Concomitant]

REACTIONS (11)
  - ALCOHOL USE [None]
  - ANOREXIA [None]
  - ASTHENIA [None]
  - DEPRESSED LEVEL OF CONSCIOUSNESS [None]
  - DIZZINESS [None]
  - FATIGUE [None]
  - FEELING ABNORMAL [None]
  - HEADACHE [None]
  - HEART RATE INCREASED [None]
  - INJECTION SITE REACTION [None]
  - LOSS OF CONSCIOUSNESS [None]
